FAERS Safety Report 25968416 (Version 1)
Quarter: 2025Q4

REPORT INFORMATION
  Report Type: Spontaneous
  Country: EU (occurrence: EU)
  Receive Date: 20251028
  Receipt Date: 20251028
  Transmission Date: 20260118
  Serious: Yes (Other)
  Sender: RANBAXY
  Company Number: EU-SUN PHARMACEUTICAL INDUSTRIES LTD-2025RR-532896

PATIENT
  Age: 50 Year
  Sex: Female

DRUGS (9)
  1. DOXORUBICIN HYDROCHLORIDE [Suspect]
     Active Substance: DOXORUBICIN HYDROCHLORIDE
     Indication: Intraductal proliferative breast lesion
     Dosage: 60 MILLIGRAM/SQ. METER FOUR CYCLES
     Route: 065
     Dates: start: 202208
  2. FULVESTRANT [Suspect]
     Active Substance: FULVESTRANT
     Indication: Intraductal proliferative breast lesion
     Dosage: 500 MILLIGRAM, MONTHLY
     Route: 065
     Dates: start: 202403
  3. LETROZOLE [Suspect]
     Active Substance: LETROZOLE
     Indication: Intraductal proliferative breast lesion
     Dosage: 2.5 MILLIGRAM, DAILY
     Route: 065
     Dates: start: 202212
  4. CAPECITABINE [Suspect]
     Active Substance: CAPECITABINE
     Indication: Intraductal proliferative breast lesion
     Dosage: 1250 MILLIGRAM/SQ. METER
     Route: 065
     Dates: start: 202307
  5. DOCETAXEL [Suspect]
     Active Substance: DOCETAXEL
     Indication: Inflammatory carcinoma of the breast
     Dosage: 80 MILLIGRAM/SQ. METER, EVERY 3 WEEKS
     Route: 065
     Dates: start: 202103
  6. TAMOXIFEN [Suspect]
     Active Substance: TAMOXIFEN
     Indication: Intraductal proliferative breast lesion
     Dosage: 20 MILLIGRAM, DAILY
     Route: 065
     Dates: start: 202109
  7. CYCLOPHOSPHAMIDE [Suspect]
     Active Substance: CYCLOPHOSPHAMIDE
     Indication: Intraductal proliferative breast lesion
     Dosage: 600 MILLIGRAM/SQ. METER FOUR CYCLES
     Route: 065
     Dates: start: 202208
  8. ABEMACICLIB [Suspect]
     Active Substance: ABEMACICLIB
     Indication: Intraductal proliferative breast lesion
     Dosage: 150 MILLIGRAM, BID
     Route: 065
  9. ALPELISIB [Concomitant]
     Active Substance: ALPELISIB
     Indication: Intraductal proliferative breast lesion
     Dosage: 300 MILLIGRAM, DAILY
     Route: 065
     Dates: start: 202403

REACTIONS (4)
  - Disease recurrence [Not Recovered/Not Resolved]
  - Disease progression [Not Recovered/Not Resolved]
  - Disease progression [Not Recovered/Not Resolved]
  - Disease progression [Not Recovered/Not Resolved]

NARRATIVE: CASE EVENT DATE: 20240601
